FAERS Safety Report 5728617-2 (Version None)
Quarter: 2008Q2

REPORT INFORMATION
  Report Type: 
  Country: None (occurrence: None)
  Receive Date: 20080502
  Receipt Date: 20080502
  Transmission Date: 20081010
  Serious: Yes (Life-Threatening, Hospitalization)
  Sender: FDA-Public Use
  Company Number: None

PATIENT
  Age: 59 Year
  Sex: Female
  Weight: 72 kg

DRUGS (1)
  1. BEVACIZUMAB 10MG/KG (GENENTECH) [Suspect]
     Indication: OVARIAN CANCER METASTATIC
     Dosage: 10MG/KG, 740MG EVERY 14 DAY IV
     Route: 042
     Dates: start: 20060131, end: 20080206

REACTIONS (5)
  - ABDOMINAL DISTENSION [None]
  - ABDOMINAL PAIN [None]
  - CONSTIPATION [None]
  - LARGE INTESTINE PERFORATION [None]
  - PERITONITIS [None]
